FAERS Safety Report 7032306-4 (Version None)
Quarter: 2010Q4

REPORT INFORMATION
  Report Type: 
  Country: None (occurrence: None)
  Receive Date: 20101005
  Receipt Date: 20100920
  Transmission Date: 20110411
  Serious: Yes (Other)
  Sender: FDA-Public Use
  Company Number: UK-ACCORD-003083

PATIENT
  Age: 68 Year
  Sex: Male

DRUGS (1)
  1. MITOMYCIN [Suspect]
     Indication: TRABECULECTOMY

REACTIONS (11)
  - CONJUNCTIVAL HYPERAEMIA [None]
  - CORECTOPIA [None]
  - ENDOPHTHALMITIS [None]
  - EYE INJURY [None]
  - HYPHAEMA [None]
  - INTRAOCULAR PRESSURE DECREASED [None]
  - IRIDOCELE [None]
  - OFF LABEL USE [None]
  - POST PROCEDURAL COMPLICATION [None]
  - SUTURE RUPTURE [None]
  - VITREOUS OPACITIES [None]
